FAERS Safety Report 9697279 (Version 1)
Quarter: 2013Q4

REPORT INFORMATION
  Report Type: Spontaneous
  Country: US (occurrence: None)
  Receive Date: 20131119
  Receipt Date: 20131119
  Transmission Date: 20140711
  Serious: Yes (Death, Hospitalization)
  Sender: FDA-Public Use
  Company Number: None

PATIENT
  Age: 62 Year
  Sex: Male
  Weight: 95.26 kg

DRUGS (2)
  1. SULFASALAZINE EC 500MG WALGREENS [Suspect]
     Indication: ARTHRITIS
     Dosage: 2   TWICE DAILY TAKEN BY MOUTH
     Route: 048
     Dates: start: 20130111, end: 20130207
  2. SULFASALAZINE EC 500MG WALGREENS [Suspect]
     Indication: CHONDROCALCINOSIS PYROPHOSPHATE
     Dosage: 2   TWICE DAILY TAKEN BY MOUTH
     Route: 048
     Dates: start: 20130111, end: 20130207

REACTIONS (11)
  - Pyrexia [None]
  - Chromaturia [None]
  - White blood cell count decreased [None]
  - Platelet count decreased [None]
  - Aspiration [None]
  - Back pain [None]
  - Chest pain [None]
  - Pneumonia [None]
  - Disorientation [None]
  - Respiratory arrest [None]
  - Bone marrow disorder [None]
